FAERS Safety Report 8981993 (Version 2)
Quarter: 2013Q1

REPORT INFORMATION
  Report Type: Spontaneous
  Country: US (occurrence: US)
  Receive Date: 20121223
  Receipt Date: 20130225
  Transmission Date: 20140127
  Serious: No
  Sender: FDA-Public Use
  Company Number: US-009507513-1212USA008500

PATIENT
  Sex: Male
  Weight: 90.7 kg

DRUGS (5)
  1. VICTRELIS [Suspect]
     Dosage: 200 MG
  2. RIBAVIRIN [Suspect]
     Dosage: 200 MG
  3. PEGASYS [Suspect]
  4. NADOLOL [Concomitant]
     Dosage: 120 MG
  5. TRAMADOL HYDROCHLORIDE [Concomitant]
     Dosage: 50 MG

REACTIONS (6)
  - Laboratory test abnormal [Unknown]
  - Laboratory test abnormal [Unknown]
  - Injection site rash [Unknown]
  - Rash pruritic [Unknown]
  - Irritability [Unknown]
  - Rash [Unknown]
